FAERS Safety Report 5348405-9 (Version None)
Quarter: 2007Q2

REPORT INFORMATION
  Report Type: 
  Country: None (occurrence: None)
  Receive Date: 20070606
  Receipt Date: 20070530
  Transmission Date: 20071010
  Serious: Yes (Other)
  Sender: FDA-Public Use
  Company Number: CH-PFIZER INC-2006011315

PATIENT
  Age: 57 Year
  Sex: Male
  Weight: 65 kg

DRUGS (7)
  1. EPIRUBICIN HYDROCHLORIDE [Suspect]
     Indication: NON-HODGKIN'S LYMPHOMA
     Route: 042
  2. PREDNISONE TAB [Suspect]
     Indication: NON-HODGKIN'S LYMPHOMA
     Route: 048
  3. VINCRISTINE [Suspect]
     Indication: NON-HODGKIN'S LYMPHOMA
     Route: 042
  4. CYCLOPHOSPHAMIDE [Suspect]
     Indication: NON-HODGKIN'S LYMPHOMA
     Route: 042
  5. MABTHERA [Suspect]
     Indication: NON-HODGKIN'S LYMPHOMA
     Route: 042
  6. ZOFRAN [Concomitant]
     Route: 048
     Dates: start: 20050607, end: 20050714
  7. NAVOBAN [Concomitant]
     Route: 048

REACTIONS (7)
  - MUSCLE ATROPHY [None]
  - MUSCLE SPASMS [None]
  - NEURALGIA [None]
  - PARAESTHESIA [None]
  - PARALYSIS [None]
  - PARESIS [None]
  - SENSORY DISTURBANCE [None]
